FAERS Safety Report 10085667 (Version 3)
Quarter: 2014Q3

REPORT INFORMATION
  Report Type: Spontaneous
  Country: US (occurrence: None)
  Receive Date: 20140416
  Receipt Date: 20140827
  Transmission Date: 20150326
  Serious: Yes (Hospitalization)
  Sender: FDA-Public Use
  Company Number: US-000835

PATIENT
  Sex: Female

DRUGS (2)
  1. GATTEX [Suspect]
     Active Substance: TEDUGLUTIDE\WATER
     Indication: SHORT-BOWEL SYNDROME
     Dosage: QD, STREN/VOLUM: 0.265 ML/FREQU: ONCE A DAY,
     Route: 058
     Dates: start: 20131009
  2. SOLUTIONS FOR PARENTERAL NUTRITION [Concomitant]
     Active Substance: AMINO ACIDS\DEXTROSE\ELECTROLYTES NOS

REACTIONS (7)
  - Peripheral swelling [None]
  - Blood disorder [None]
  - Feeding tube complication [None]
  - Infection [None]
  - Skin burning sensation [None]
  - Medical device complication [None]
  - Spinal cord oedema [None]

NARRATIVE: CASE EVENT DATE: 2013
